FAERS Safety Report 24769605 (Version 1)
Quarter: 2024Q4

REPORT INFORMATION
  Report Type: Spontaneous
  Country: US (occurrence: None)
  Receive Date: 20241223
  Receipt Date: 20241223
  Transmission Date: 20250115
  Serious: Yes (Death)
  Sender: Public
  Company Number: None

PATIENT
  Age: 64 Year
  Sex: Female

DRUGS (1)
  1. TADALAFIL [Suspect]
     Active Substance: TADALAFIL
     Indication: Pulmonary hypertension
     Dosage: FREQUENCY : DAILY;?
     Route: 048
     Dates: start: 20191119, end: 20241120

REACTIONS (7)
  - Dyspnoea [None]
  - Oedema peripheral [None]
  - Weight increased [None]
  - Renal impairment [None]
  - Respiratory failure [None]
  - Hyperkalaemia [None]
  - Cardio-respiratory arrest [None]

NARRATIVE: CASE EVENT DATE: 20241120
